FAERS Safety Report 25567298 (Version 2)
Quarter: 2025Q3

REPORT INFORMATION
  Report Type: Spontaneous
  Country: CH (occurrence: CH)
  Receive Date: 20250716
  Receipt Date: 20250717
  Transmission Date: 20251021
  Serious: Yes (Other)
  Sender: TEVA
  Company Number: CH-TEVA-VS-3351352

PATIENT
  Sex: Female

DRUGS (2)
  1. VALSARTAN [Suspect]
     Active Substance: VALSARTAN
     Indication: Product used for unknown indication
     Route: 048
  2. BISOPROLOL [Suspect]
     Active Substance: BISOPROLOL
     Indication: Product used for unknown indication
     Route: 048

REACTIONS (5)
  - Tongue disorder [Unknown]
  - Muscle tightness [Unknown]
  - Swelling face [Unknown]
  - Hypersensitivity [Unknown]
  - Throat tightness [Unknown]
